FAERS Safety Report 7778414-1 (Version None)
Quarter: 2011Q3

REPORT INFORMATION
  Report Type: 
  Country: None (occurrence: None)
  Receive Date: 20110926
  Receipt Date: 20110405
  Transmission Date: 20111222
  Serious: Yes (Other)
  Sender: FDA-Public Use
  Company Number: US-GLAXOSMITHKLINE-A0922141A

PATIENT
  Age: 80 Year
  Sex: Male

DRUGS (1)
  1. AVANDIA [Suspect]
     Indication: DIABETES MELLITUS
     Route: 048
     Dates: start: 20000501, end: 20081215

REACTIONS (6)
  - VISUAL ACUITY REDUCED [None]
  - ERYTHEMA [None]
  - CARDIAC FAILURE CONGESTIVE [None]
  - MACULAR OEDEMA [None]
  - ARTHRALGIA [None]
  - VISION BLURRED [None]
